FAERS Safety Report 5503456-6 (Version None)
Quarter: 2007Q4

REPORT INFORMATION
  Report Type: 
  Country: None (occurrence: None)
  Receive Date: 20071031
  Receipt Date: 20071019
  Transmission Date: 20080405
  Serious: Yes (Other)
  Sender: FDA-Public Use
  Company Number: US-PFIZER INC-2007089657

PATIENT
  Sex: Female
  Weight: 54.4 kg

DRUGS (2)
  1. CHANTIX [Suspect]
     Indication: SMOKING CESSATION THERAPY
     Dates: start: 20070101, end: 20070901
  2. THYROID TAB [Concomitant]
     Indication: THYROID DISORDER

REACTIONS (3)
  - LUNG OPERATION [None]
  - NAUSEA [None]
  - VOMITING [None]
